FAERS Safety Report 6626344-0 (Version None)
Quarter: 2010Q1

REPORT INFORMATION
  Report Type: 
  Country: None (occurrence: None)
  Receive Date: 20100310
  Receipt Date: 20091218
  Transmission Date: 20100710
  Serious: Yes (Congenital Anomaly)
  Sender: FDA-Public Use
  Company Number: FR-PFIZER INC-2010025892

PATIENT
  Sex: Male
  Weight: 3.22 kg

DRUGS (6)
  1. NELFINAVIR MESILATE [Suspect]
     Indication: HIV INFECTION
     Dosage: UNK
     Route: 064
     Dates: start: 20060610, end: 20061018
  2. ZIDOVUDINE [Suspect]
     Indication: HIV INFECTION
     Dosage: UNK
     Route: 064
     Dates: start: 20060426
  3. LAMIVUDINE [Suspect]
     Indication: HIV INFECTION
     Dosage: UNK
     Route: 064
     Dates: start: 20060426
  4. RITONAVIR [Suspect]
     Indication: HIV INFECTION
     Dosage: UNK
     Route: 064
     Dates: start: 20061018
  5. EFAVIRENZ [Suspect]
     Indication: HIV INFECTION
     Dosage: UNK
     Route: 064
     Dates: start: 20060426
  6. LOPINAVIR [Suspect]
     Indication: HIV INFECTION
     Dosage: UNK
     Route: 064
     Dates: start: 20061018

REACTIONS (3)
  - DRUG EXPOSURE DURING PREGNANCY [None]
  - HEPATIC CYST [None]
  - SICKLE CELL ANAEMIA [None]
